FAERS Safety Report 16751554 (Version 1)
Quarter: 2019Q3

REPORT INFORMATION
  Report Type: Spontaneous
  Country: US (occurrence: US)
  Receive Date: 20190828
  Receipt Date: 20190828
  Transmission Date: 20191005
  Serious: Yes (Other)
  Sender: FDA-Public Use
  Company Number: US-ENDO PHARMACEUTICALS INC-2018-040849

PATIENT
  Sex: Female
  Weight: 81.18 kg

DRUGS (2)
  1. PREDNISONE. [Suspect]
     Active Substance: PREDNISONE
     Indication: RHEUMATOID ARTHRITIS
     Dosage: UNK UNKNOWN, UNKNOWN
     Route: 065
  2. PREDNISONE. [Suspect]
     Active Substance: PREDNISONE
     Indication: OSTEOPOROSIS

REACTIONS (3)
  - Syncope [Unknown]
  - Therapeutic response unexpected [Unknown]
  - Malaise [Unknown]

NARRATIVE: CASE EVENT DATE: 2015
